FAERS Safety Report 12526878 (Version 1)
Quarter: 2016Q3

REPORT INFORMATION
  Report Type: Spontaneous
  Country: US (occurrence: US)
  Receive Date: 20160705
  Receipt Date: 20160705
  Transmission Date: 20161109
  Serious: No
  Sender: FDA-Public Use
  Company Number: US-BRISTOL-MYERS SQUIBB COMPANY-BMS-2016-053915

PATIENT
  Sex: Female

DRUGS (5)
  1. ABILIFY [Suspect]
     Active Substance: ARIPIPRAZOLE
     Dosage: 10 UNK, UNK
     Route: 048
  2. ABILIFY [Suspect]
     Active Substance: ARIPIPRAZOLE
     Dosage: 15 UNK, UNK
     Route: 048
  3. ABILIFY [Suspect]
     Active Substance: ARIPIPRAZOLE
     Indication: MANIA
     Dosage: 5 MG, QD
     Route: 048
     Dates: start: 201310
  4. ABILIFY [Suspect]
     Active Substance: ARIPIPRAZOLE
     Dosage: 20 UNK, UNK
     Route: 048
  5. ARIPIPRAZOLE. [Suspect]
     Active Substance: ARIPIPRAZOLE
     Indication: MANIA
     Dosage: UNK, QD
     Route: 048
     Dates: end: 20160205

REACTIONS (4)
  - Thinking abnormal [Unknown]
  - Tremor [Recovered/Resolved]
  - Parkinsonism [Recovered/Resolved]
  - Off label use [Unknown]
